FAERS Safety Report 5898014-8 (Version None)
Quarter: 2008Q3

REPORT INFORMATION
  Report Type: 
  Country: None (occurrence: None)
  Receive Date: 20080917
  Receipt Date: 20080321
  Transmission Date: 20090109
  Serious: Yes (Death)
  Sender: FDA-Public Use
  Company Number: PHEH2008US03004

PATIENT
  Age: 60 Year
  Sex: Female

DRUGS (2)
  1. FEMARA [Suspect]
     Indication: NEOPLASM MALIGNANT
     Dosage: 2.5 MG, QD
  2. ZOMETA [Suspect]
     Indication: NEOPLASM MALIGNANT
     Dosage: 4 MG

REACTIONS (1)
  - MALIGNANT NEOPLASM PROGRESSION [None]
